FAERS Safety Report 5528493-7 (Version None)
Quarter: 2007Q4

REPORT INFORMATION
  Report Type: 
  Country: None (occurrence: None)
  Receive Date: 20071128
  Receipt Date: 20071122
  Transmission Date: 20080405
  Serious: Yes (Life-Threatening, Hospitalization, Other)
  Sender: FDA-Public Use
  Company Number: GB-MERCK-0711GBR00031

PATIENT
  Age: 80 Year
  Sex: Male

DRUGS (2)
  1. ZOCOR [Suspect]
     Route: 048
  2. ERYTHROMYCIN [Suspect]
     Route: 065

REACTIONS (7)
  - ABASIA [None]
  - ASPARTATE AMINOTRANSFERASE INCREASED [None]
  - DRUG INTERACTION [None]
  - MYALGIA [None]
  - MYOGLOBINURIA [None]
  - RENAL FAILURE [None]
  - RHABDOMYOLYSIS [None]
